FAERS Safety Report 6212998-X (Version None)
Quarter: 2009Q2

REPORT INFORMATION
  Report Type: 
  Country: None (occurrence: None)
  Receive Date: 20090603
  Receipt Date: 20090525
  Transmission Date: 20091009
  Serious: Yes (Hospitalization)
  Sender: FDA-Public Use
  Company Number: JP-ABBOTT-09P-087-0575369-00

PATIENT
  Sex: Male
  Weight: 52 kg

DRUGS (2)
  1. HUMIRA [Suspect]
     Indication: RHEUMATOID ARTHRITIS
     Route: 058
     Dates: start: 20081209, end: 20090403
  2. HUMIRA [Suspect]
     Route: 058
     Dates: start: 20090508, end: 20090525

REACTIONS (1)
  - ARTHRITIS [None]
